FAERS Safety Report 9297129 (Version 1)
Quarter: 2013Q2

REPORT INFORMATION
  Report Type: Spontaneous
  Country: FR (occurrence: FR)
  Receive Date: 20130520
  Receipt Date: 20130520
  Transmission Date: 20140414
  Serious: Yes (Life-Threatening)
  Sender: FDA-Public Use
  Company Number: FR-ROCHE-1224894

PATIENT
  Age: 28 Year
  Sex: Female

DRUGS (14)
  1. CELLCEPT [Suspect]
     Indication: SYSTEMIC LUPUS ERYTHEMATOSUS
     Route: 048
  2. BENLYSTA [Suspect]
     Indication: SYSTEMIC LUPUS ERYTHEMATOSUS
     Route: 042
     Dates: start: 20130118
  3. CORTANCYL [Suspect]
     Indication: SYSTEMIC LUPUS ERYTHEMATOSUS
     Route: 048
  4. NIVAQUINE [Concomitant]
  5. TRIATEC [Concomitant]
  6. LOVENOX [Concomitant]
  7. DIFFU K [Concomitant]
  8. OGAST [Concomitant]
  9. CACIT VITAMINE D3 [Concomitant]
  10. ROCEPHINE [Concomitant]
     Route: 065
  11. AUGMENTIN [Concomitant]
     Route: 065
  12. TAZOCILLINE [Concomitant]
     Route: 065
  13. TARGOCID [Concomitant]
  14. ROVAMYCINE [Concomitant]
     Dosage: 1.5 MIU/8 HOURS
     Route: 065

REACTIONS (4)
  - Lung infection [Recovered/Resolved]
  - Respiratory distress [Recovered/Resolved]
  - Influenza A virus test positive [Recovering/Resolving]
  - Anuria [Recovering/Resolving]
